FAERS Safety Report 8260838-X (Version None)
Quarter: 2012Q2

REPORT INFORMATION
  Report Type: 
  Country: None (occurrence: None)
  Receive Date: 20120402
  Receipt Date: 20120319
  Transmission Date: 20120825
  Serious: Yes (Hospitalization, Other)
  Sender: FDA-Public Use
  Company Number: 2012MA003640

PATIENT
  Age: 86 Year
  Sex: Female
  Weight: 71.4415 kg

DRUGS (17)
  1. ASPIRIN [Concomitant]
  2. DIPYRIDAMOLE [Concomitant]
  3. SIMVASTATIN [Concomitant]
  4. ROCEPHIN [Concomitant]
  5. ZESTRIL [Concomitant]
  6. CEPHALEXIN [Concomitant]
  7. WARFARIN SODIUM [Concomitant]
  8. KENALOG [Concomitant]
  9. LISINOPRIL [Concomitant]
  10. AZITHROMYCIN [Concomitant]
  11. DIGOXIN [Suspect]
     Indication: PRODUCT USED FOR UNKNOWN INDICATION
     Dosage: 125 MCG;QD;PO
     Route: 048
     Dates: start: 20060425, end: 20091023
  12. HYDROCHLOROTHIAZIDE [Concomitant]
  13. ZOCOR [Concomitant]
  14. LORATADINE [Concomitant]
  15. METOPROLOL TARTRATE [Concomitant]
  16. LOPRESSOR [Concomitant]
  17. ASPIRIN [Concomitant]

REACTIONS (22)
  - BACK PAIN [None]
  - MENTAL STATUS CHANGES [None]
  - RHONCHI [None]
  - SUPRAVENTRICULAR EXTRASYSTOLES [None]
  - MYOCARDIAL INFARCTION [None]
  - NAUSEA [None]
  - CARDIOMEGALY [None]
  - DECREASED APPETITE [None]
  - ASTHENIA [None]
  - HYPONATRAEMIA [None]
  - SKIN LESION [None]
  - MALAISE [None]
  - HYPERTENSION [None]
  - SINUSITIS [None]
  - ATRIAL FIBRILLATION [None]
  - CYST [None]
  - INFLAMMATION [None]
  - CEREBROVASCULAR ACCIDENT [None]
  - BRONCHITIS [None]
  - HYPERLIPIDAEMIA [None]
  - OROPHARYNGEAL PAIN [None]
  - CEREBRAL ATROPHY [None]
